FAERS Safety Report 11128242 (Version 2)
Quarter: 2015Q3

REPORT INFORMATION
  Report Type: Spontaneous
  Country: FR (occurrence: FR)
  Receive Date: 20150521
  Receipt Date: 20150909
  Transmission Date: 20151125
  Serious: Yes (Hospitalization, Disabling)
  Sender: FDA-Public Use
  Company Number: FR-TEVA-563933ISR

PATIENT
  Age: 43 Year
  Sex: Female

DRUGS (1)
  1. LEELOO 0.1 MG/ 0.02 MG [Suspect]
     Active Substance: ETHINYL ESTRADIOL\LEVONORGESTREL
     Indication: CONTRACEPTION
     Dates: start: 20120628

REACTIONS (10)
  - Pulmonary embolism [Recovered/Resolved]
  - Cerebral venous thrombosis [Recovered/Resolved with Sequelae]
  - Phlebitis [Recovered/Resolved]
  - Visual impairment [Not Recovered/Not Resolved]
  - Cognitive disorder [Not Recovered/Not Resolved]
  - Hemiplegia [Recovering/Resolving]
  - Hemianopia homonymous [Not Recovered/Not Resolved]
  - Cerebrovascular accident [Recovered/Resolved with Sequelae]
  - Headache [Not Recovered/Not Resolved]
  - Brain lobectomy [Recovered/Resolved with Sequelae]

NARRATIVE: CASE EVENT DATE: 2012
